FAERS Safety Report 14469055 (Version 5)
Quarter: 2018Q2

REPORT INFORMATION
  Report Type: Report from Study
  Country: CA (occurrence: CA)
  Receive Date: 20180131
  Receipt Date: 20180529
  Transmission Date: 20180711
  Serious: No
  Sender: FDA-Public Use
  Company Number: CA-JNJFOC-20180129762

PATIENT
  Age: 23 Year
  Sex: Male
  Weight: 49.6 kg

DRUGS (1)
  1. STELARA [Suspect]
     Active Substance: USTEKINUMAB
     Indication: CROHN^S DISEASE
     Route: 058
     Dates: start: 20171109

REACTIONS (7)
  - Influenza like illness [Recovered/Resolved]
  - Gastrointestinal disorder [Recovering/Resolving]
  - Weight decreased [Recovering/Resolving]
  - Abdominal pain [Unknown]
  - Jaundice [Recovering/Resolving]
  - General physical health deterioration [Unknown]
  - Frequent bowel movements [Unknown]

NARRATIVE: CASE EVENT DATE: 201712
